FAERS Safety Report 20904910 (Version 1)
Quarter: 2022Q2

REPORT INFORMATION
  Report Type: Spontaneous
  Country: US (occurrence: None)
  Receive Date: 20220601
  Receipt Date: 20220601
  Transmission Date: 20220721
  Serious: Yes (Hospitalization)
  Sender: FDA-Public Use
  Company Number: None

PATIENT
  Age: 39 Year
  Sex: Male
  Weight: 81.8 kg

DRUGS (1)
  1. TISAGENLECLEUCEL [Suspect]
     Active Substance: TISAGENLECLEUCEL
     Indication: Diffuse large B-cell lymphoma
     Dosage: FREQUENCY : ONCE;?
     Route: 042
     Dates: start: 20220426, end: 20220426

REACTIONS (5)
  - Cytokine release syndrome [None]
  - Neurotoxicity [None]
  - Seizure [None]
  - Encephalopathy [None]
  - Human herpesvirus 6 encephalitis [None]

NARRATIVE: CASE EVENT DATE: 20220427
